FAERS Safety Report 8450988-7 (Version None)
Quarter: 2012Q2

REPORT INFORMATION
  Report Type: 
  Country: None (occurrence: None)
  Receive Date: 20120620
  Receipt Date: 20120611
  Transmission Date: 20120825
  Serious: Yes (Other)
  Sender: FDA-Public Use
  Company Number: US-ROCHE-1043065

PATIENT
  Sex: Male
  Weight: 59.02 kg

DRUGS (4)
  1. MINOCYCLINE HCL [Concomitant]
  2. ACCUTANE [Suspect]
     Indication: ACNE
     Dosage: 40 MG AND 20 MG
     Dates: start: 20031117, end: 20040130
  3. ACCUTANE [Suspect]
     Route: 048
     Dates: start: 20040227, end: 20040613
  4. ACCUTANE [Suspect]
     Route: 048
     Dates: start: 20031216, end: 20040130

REACTIONS (5)
  - CHAPPED LIPS [None]
  - ANXIETY [None]
  - DRY SKIN [None]
  - INFLAMMATORY BOWEL DISEASE [None]
  - CROHN'S DISEASE [None]
